FAERS Safety Report 18316250 (Version 1)
Quarter: 2020Q3

REPORT INFORMATION
  Report Type: Spontaneous
  Country: US (occurrence: US)
  Receive Date: 20200927
  Receipt Date: 20200927
  Transmission Date: 20201103
  Serious: Yes (Life-Threatening, Hospitalization, Other)
  Sender: FDA-Public Use
  Company Number: US-TORRENT-00010431

PATIENT
  Age: 59 Year
  Sex: Female

DRUGS (1)
  1. SILDENAFIL. [Suspect]
     Active Substance: SILDENAFIL
     Indication: PULMONARY HYPERTENSION

REACTIONS (6)
  - Pulmonary hypertension [Recovered/Resolved]
  - Secretion discharge [Recovered/Resolved]
  - Pulmonary oedema [Recovered/Resolved]
  - Cardiac failure acute [Recovered/Resolved]
  - Increased ventricular preload [Recovered/Resolved]
  - Pulseless electrical activity [Recovered/Resolved]
